FAERS Safety Report 8559374-2 (Version None)
Quarter: 2012Q3

REPORT INFORMATION
  Report Type: 
  Country: None (occurrence: None)
  Receive Date: 20120802
  Receipt Date: 20120801
  Transmission Date: 20120928
  Serious: Yes (Other)
  Sender: FDA-Public Use
  Company Number: PHFR2012GB004274

PATIENT
  Age: 28 Year
  Sex: Male

DRUGS (2)
  1. CARBAMAZEPINE [Suspect]
     Indication: RESTLESSNESS
     Dosage: 400 MG, BID
     Dates: start: 20111201
  2. CARBAMAZEPINE [Suspect]
     Dosage: 200 MG, BID
     Dates: end: 20120301

REACTIONS (3)
  - MOTOR DYSFUNCTION [None]
  - HYPOKINESIA [None]
  - MUSCULOSKELETAL STIFFNESS [None]
